FAERS Safety Report 8534223-7 (Version None)
Quarter: 2012Q3

REPORT INFORMATION
  Report Type: 
  Country: None (occurrence: None)
  Receive Date: 20120724
  Receipt Date: 20120713
  Transmission Date: 20120928
  Serious: Yes (Death, Hospitalization)
  Sender: FDA-Public Use
  Company Number: JP-BAYER-200914000BYL

PATIENT
  Age: 75 Year
  Sex: Male
  Weight: 53.2 kg

DRUGS (18)
  1. SENNOSIDE [Concomitant]
     Indication: CONSTIPATION PROPHYLAXIS
     Dosage: FROM 24 TO 48 MG/DAY, SINCE BEFORE NEXAVAR ADMINISTRATION
     Route: 048
  2. SEPAMIT [Concomitant]
     Dosage: SINCE BEFORE NEXAVAR ADMINISTRATION
     Route: 048
     Dates: end: 20090826
  3. GABAPENTIN [Concomitant]
     Indication: ANALGESIC THERAPY
     Dosage: SINCE BEFORE NEXAVAR ADMINISTRATION
     Route: 048
  4. AMITRIPTYLINE HCL [Concomitant]
     Indication: ANALGESIC THERAPY
     Dosage: SINCE BEFORE NEXAVAR ADMINISTRATION
     Route: 048
  5. KERATINAMIN [Concomitant]
     Indication: PROPHYLAXIS
     Route: 061
     Dates: start: 20090729, end: 20090820
  6. VOLTAREN [Concomitant]
     Indication: PAIN MANAGEMENT
     Dosage: 75 MG (DAILY DOSE), , RECTAL
     Route: 054
     Dates: start: 20090826
  7. NEXAVAR [Suspect]
     Dosage: 800 MG (DAILY DOSE), , ORAL
     Route: 048
     Dates: start: 20090803, end: 20090818
  8. OXYCONTIN [Suspect]
     Indication: PAIN MANAGEMENT
     Dosage: SINCE BEFORE NEXAVAR ADMINISTRATION
     Route: 048
     Dates: end: 20090817
  9. OMEPRAZOLE [Concomitant]
     Indication: GASTRITIS PROPHYLAXIS
     Dosage: 40 MG (DAILY DOSE), , INTRAVENOUS
     Route: 042
     Dates: start: 20090826, end: 20090828
  10. NEXAVAR [Suspect]
     Indication: HEPATIC NEOPLASM MALIGNANT
     Dosage: 800 MG (DAILY DOSE), , ORAL
     Route: 048
     Dates: start: 20090730, end: 20090731
  11. MAGLAX [Concomitant]
     Indication: CONSTIPATION PROPHYLAXIS
     Dosage: FROM 1980 TO 4950 MG/DAY, SINCE BEFORE NEXAVAR ADMINISTRATION
     Route: 048
  12. FENTANYL-100 [Concomitant]
     Indication: PAIN MANAGEMENT
     Dosage: EVERY 3 DAYS
     Route: 062
     Dates: start: 20090826
  13. OXYCONTIN [Suspect]
     Dosage: 160 MG (DAILY DOSE), , UNKNOWN
     Route: 065
     Dates: start: 20090818, end: 20090823
  14. MUCOSTA [Concomitant]
     Indication: GASTRITIS PROPHYLAXIS
     Dosage: SINCE BEFORE NEXAVAR ADMINISTRATION
     Route: 048
  15. LOXONIN [Concomitant]
     Indication: PAIN MANAGEMENT
     Dosage: SINCE BEFORE NEXAVAR ADMINISTRATION
     Route: 048
     Dates: end: 20090826
  16. FENTANYL-100 [Concomitant]
     Dosage: EVERY 3 DAYS
     Route: 062
     Dates: start: 20090829
  17. OXYCODONE HYDROCHLORIDE [Concomitant]
     Indication: PAIN MANAGEMENT
     Dosage: SINCE BEFORE NEXAVAR ADMINISTRATION
     Route: 048
     Dates: end: 20090825
  18. ANPEC [Concomitant]
     Indication: PAIN MANAGEMENT
     Dosage: FROM 30 TO 60 MG/DAY
     Route: 054
     Dates: start: 20090824

REACTIONS (8)
  - NAUSEA [None]
  - HEPATIC NEOPLASM MALIGNANT [None]
  - ILEUS [None]
  - PALMAR-PLANTAR ERYTHRODYSAESTHESIA SYNDROME [None]
  - VOMITING [None]
  - DECREASED APPETITE [None]
  - FATIGUE [None]
  - STOMATITIS [None]
